FAERS Safety Report 20371561 (Version 4)
Quarter: 2022Q2

REPORT INFORMATION
  Report Type: Spontaneous
  Country: JP (occurrence: JP)
  Receive Date: 20220124
  Receipt Date: 20220523
  Transmission Date: 20220720
  Serious: Yes (Other)
  Sender: FDA-Public Use
  Company Number: JP-PFIZER INC-202200123444

PATIENT
  Age: 56 Year
  Sex: Female

DRUGS (7)
  1. SIROLIMUS [Suspect]
     Active Substance: SIROLIMUS
     Indication: Lymphangioleiomyomatosis
     Dosage: 1 MG, 1X/DAY
     Route: 048
     Dates: start: 20200310, end: 20201106
  2. SIROLIMUS [Suspect]
     Active Substance: SIROLIMUS
     Dosage: UNK
     Route: 048
     Dates: start: 20210427, end: 20210510
  3. SIROLIMUS [Suspect]
     Active Substance: SIROLIMUS
     Dosage: UNK
     Route: 048
     Dates: start: 20210601
  4. XYZAL [Concomitant]
     Active Substance: LEVOCETIRIZINE DIHYDROCHLORIDE
     Dosage: 5 MG,1 D
     Route: 065
  5. BELSOMRA [Concomitant]
     Active Substance: SUVOREXANT
     Dosage: 15 MG,1 D
     Route: 065
  6. ZOLPIDEM TARTRATE [Concomitant]
     Active Substance: ZOLPIDEM TARTRATE
     Dosage: 5 MG,1 D
     Route: 065
  7. HERBALS [Concomitant]
     Active Substance: HERBALS
     Dosage: 1 DOSAGE FORMS
     Route: 065

REACTIONS (1)
  - Tooth infection [Recovered/Resolved]

NARRATIVE: CASE EVENT DATE: 20201104
